FAERS Safety Report 17197205 (Version 3)
Quarter: 2020Q1

REPORT INFORMATION
  Report Type: Report from Study
  Country: CN (occurrence: CN)
  Receive Date: 20191224
  Receipt Date: 20200116
  Transmission Date: 20200409
  Serious: Yes (Hospitalization)
  Sender: FDA-Public Use
  Company Number: PHHO2019CN008615

PATIENT
  Age: 59 Year
  Sex: Female
  Weight: 65 kg

DRUGS (8)
  1. EVEROLIMUS. [Suspect]
     Active Substance: EVEROLIMUS
     Dosage: 10 MG, QD
     Route: 048
     Dates: start: 20190525, end: 20190814
  2. BUFEXAMAC [Concomitant]
     Active Substance: BUFEXAMAC
     Indication: DERMATITIS
     Dosage: 2 G, BID
     Route: 003
     Dates: start: 20190828
  3. METFORMIN HYDROCHLORIDE + GLYBURIDE [Concomitant]
     Active Substance: GLYBURIDE\METFORMIN HYDROCHLORIDE
     Indication: DIABETES MELLITUS
     Dosage: 2 PILSS BID
     Route: 048
     Dates: start: 20190824
  4. EXEMESTANE. [Suspect]
     Active Substance: EXEMESTANE
     Indication: BREAST CANCER METASTATIC
     Dosage: 25 MG, QD
     Route: 048
     Dates: start: 20190525, end: 20190814
  5. METFORMIN HYDROCHLORIDE. [Concomitant]
     Active Substance: METFORMIN HYDROCHLORIDE
     Indication: HYPERGLYCAEMIA
     Dosage: 0.25 MG, BID
     Route: 048
     Dates: start: 20190618
  6. LORATADINE. [Concomitant]
     Active Substance: LORATADINE
     Indication: DERMATITIS
     Dosage: 90 MG, QD
     Route: 048
     Dates: start: 20190824
  7. DESONIDE. [Concomitant]
     Active Substance: DESONIDE
     Indication: DERMATITIS ALLERGIC
     Dosage: 2 G, BID
     Route: 003
     Dates: start: 20190828
  8. GLICLAZIDE [Concomitant]
     Active Substance: GLICLAZIDE
     Indication: DIABETES MELLITUS
     Dosage: 80 MG, QD
     Route: 048
     Dates: start: 20190618, end: 20190712

REACTIONS (1)
  - Abscess limb [Recovered/Resolved]

NARRATIVE: CASE EVENT DATE: 20190808
